FAERS Safety Report 20203339 (Version 1)
Quarter: 2021Q4

REPORT INFORMATION
  Report Type: Report from Study
  Country: US (occurrence: US)
  Receive Date: 20211218
  Receipt Date: 20211218
  Transmission Date: 20220304
  Serious: Yes (Other)
  Sender: FDA-Public Use
  Company Number: US-NOVARTISPH-NVSC2021US287680

PATIENT
  Sex: Female

DRUGS (1)
  1. ENTRESTO [Suspect]
     Active Substance: SACUBITRIL\VALSARTAN
     Indication: Product used for unknown indication
     Dosage: 0.5 DOSAGE FORM (24/26 MG), BID (MORNING AND NIGHT)
     Route: 065

REACTIONS (3)
  - Pneumonia [Unknown]
  - COVID-19 [Unknown]
  - Wrong technique in product usage process [Unknown]
